FAERS Safety Report 22944410 (Version 3)
Quarter: 2024Q2

REPORT INFORMATION
  Report Type: Spontaneous
  Country: US (occurrence: US)
  Receive Date: 20230914
  Receipt Date: 20240613
  Transmission Date: 20240716
  Serious: Yes (Hospitalization, Other)
  Sender: FDA-Public Use
  Company Number: US-SUN PHARMACEUTICAL INDUSTRIES LTD-2023R1-408062

PATIENT
  Age: 10 Year
  Sex: Male
  Weight: 68 kg

DRUGS (5)
  1. DOXEPIN [Interacting]
     Active Substance: DOXEPIN
     Indication: Insomnia
     Dosage: 300 MILLIGRAM, DAILY
     Route: 065
  2. DOXEPIN [Interacting]
     Active Substance: DOXEPIN
     Dosage: 200 MILLIGRAM
     Route: 065
  3. DOXEPIN [Interacting]
     Active Substance: DOXEPIN
     Dosage: 300 MILLIGRAM
     Route: 065
  4. TOPIRAMATE [Interacting]
     Active Substance: TOPIRAMATE
     Indication: Seizure
     Dosage: 300 MILLIGRAM, DAILY
     Route: 065
  5. CLOBAZAM [Interacting]
     Active Substance: CLOBAZAM
     Indication: Seizure
     Dosage: 10 MILLIGRAM, DAILY
     Route: 065

REACTIONS (5)
  - Toxicity to various agents [Unknown]
  - Drug interaction [Unknown]
  - Confusional state [Recovered/Resolved]
  - Ataxia [Recovered/Resolved]
  - Drug ineffective [Unknown]
